FAERS Safety Report 8843444 (Version 1)
Quarter: 2012Q4

REPORT INFORMATION
  Report Type: 
  Country: AU (occurrence: AU)
  Receive Date: 20121016
  Receipt Date: 20121016
  Transmission Date: 20130627
  Serious: Yes (Life-Threatening, Hospitalization)
  Sender: FDA-Public Use
  Company Number: AU-BAYER-2012-104710

PATIENT
  Age: 46 Year
  Sex: Female
  Weight: 74.6 kg

DRUGS (14)
  1. ASPIRIN CARDIO [Suspect]
     Indication: HYPERTENSION
     Dosage: 100 mg, OM
     Route: 048
     Dates: start: 2007, end: 20120821
  2. VARENICLINE;BUPROPION;NICOTINE;PLACEBO [Suspect]
     Indication: EX-TOBACCO USER
     Dosage: UNK
     Dates: start: 20120702, end: 20120820
  3. VARENICLINE;BUPROPION;NICOTINE;PLACEBO [Suspect]
     Indication: EX-TOBACCO USER
     Dosage: UNK
     Dates: start: 20120710, end: 20120821
  4. TARKA [Suspect]
     Indication: HYPERTENSION
     Dosage: 4/240, OM
     Route: 048
     Dates: start: 2007, end: 20120821
  5. LEXAPRO [Concomitant]
     Indication: DEPRESSION
     Dosage: 20 mg, OM
     Route: 048
     Dates: start: 2008
  6. ALPHAPRESS [Concomitant]
     Indication: HYPERTENSION
     Dosage: 25 mg, TID
     Route: 048
     Dates: start: 201201
  7. DABEX XR [Concomitant]
     Indication: TYPE 2 DIABETES MELLITUS
     Dosage: 3000 mg, OM
     Route: 048
     Dates: start: 2007
  8. VENTOLIN [Concomitant]
     Indication: ASTHMA
     Dosage: 2 puffs, PRN
     Dates: start: 1985
  9. SERETIDE [Concomitant]
     Indication: ASTHMA
     Dosage: 2 puffs, BID
     Dates: start: 1985
  10. PREDNISOLONE [Concomitant]
     Indication: ASTHMA
     Dosage: UNK UNK, QD
     Route: 048
     Dates: start: 20120807, end: 20120811
  11. PREDNISOLONE [Concomitant]
     Indication: LOWER RESPIRATORY TRACT INFECTION
  12. INSULIN [Concomitant]
     Dosage: UNK
     Dates: start: 20120823, end: 20120829
  13. CLOPIDOGREL [Concomitant]
  14. ORAL HYPOGLYCEMIC AGENTS [Concomitant]

REACTIONS (3)
  - Angioedema [Recovered/Resolved]
  - Swollen tongue [Recovered/Resolved]
  - Urticaria [Recovered/Resolved]
